FAERS Safety Report 9772936 (Version 1)
Quarter: 2013Q4

REPORT INFORMATION
  Report Type: Spontaneous
  Country: US (occurrence: None)
  Receive Date: 20131218
  Receipt Date: 20131218
  Transmission Date: 20140711
  Serious: Yes (Hospitalization)
  Sender: FDA-Public Use
  Company Number: None

PATIENT
  Age: 64 Year
  Sex: Male

DRUGS (1)
  1. CLONIDINE [Suspect]
     Indication: THERAPY CESSATION
     Route: 048
     Dates: start: 20131009, end: 20131009

REACTIONS (2)
  - Syncope [None]
  - Bradycardia [None]
